FAERS Safety Report 23214783 (Version 2)
Quarter: 2024Q1

REPORT INFORMATION
  Report Type: Report from Study
  Country: JP (occurrence: JP)
  Receive Date: 20231121
  Receipt Date: 20240124
  Transmission Date: 20240409
  Serious: Yes (Death)
  Sender: FDA-Public Use
  Company Number: JP-ABBVIE-20K-087-3699558-00

PATIENT
  Age: 83 Year
  Sex: Female
  Weight: 34 kg

DRUGS (8)
  1. CARBIDOPA\LEVODOPA [Suspect]
     Active Substance: CARBIDOPA\LEVODOPA
     Indication: Parkinson^s disease
     Dosage: MD: 8.0 ML, CD: 3.4 ML/HR, ED: 1.2 ML/UNIT
     Route: 050
     Dates: start: 20191125, end: 20231119
  2. CARBIDOPA\LEVODOPA [Suspect]
     Active Substance: CARBIDOPA\LEVODOPA
  3. MIRABEGRON [Concomitant]
     Active Substance: MIRABEGRON
     Indication: Product used for unknown indication
     Dosage: FORM STRENGTH: 500?FORM STRENGTH UNITS: UNKNOWN
     Dates: end: 20200530
  4. AMEZINIUM METILSULFATE [Concomitant]
     Active Substance: AMEZINIUM METILSULFATE
     Indication: Hypotension
     Dosage: 1 TABLET?FORM STRENGTH: 100?FORM STRENGTH UNITS: UNKNOWN
     Dates: end: 20231120
  5. DROXIDOPA [Concomitant]
     Active Substance: DROXIDOPA
     Indication: Parkinson^s disease
     Dosage: TIME INTERVAL: 0.33333333 DAYS: 4.5 CAPSULE?FORM STRENGTH: 100?FORM STRENGTH UNITS: UNKNOWN
     Dates: end: 20231120
  6. METHYLCOBALAMIN [Concomitant]
     Active Substance: METHYLCOBALAMIN
     Indication: Prophylaxis
     Dosage: 1 TABLET
     Dates: start: 20230303, end: 20231120
  7. ROTIGOTINE [Concomitant]
     Active Substance: ROTIGOTINE
     Indication: Parkinson^s disease
     Dosage: 9 MILLIGRAM
  8. DONEPEZIL HYDROCHLORIDE [Concomitant]
     Active Substance: DONEPEZIL HYDROCHLORIDE
     Indication: Dementia
     Dosage: 1 TABLET?FORM STRENGTH: 3?FORM STRENGTH UNITS: UNKNOWN
     Dates: start: 201810, end: 20231120

REACTIONS (4)
  - Sudden death [Fatal]
  - Autonomic neuropathy [Unknown]
  - Wheelchair user [Unknown]
  - Decreased appetite [Unknown]

NARRATIVE: CASE EVENT DATE: 20231120
